FAERS Safety Report 15803130 (Version 1)
Quarter: 2019Q1

REPORT INFORMATION
  Report Type: Spontaneous
  Country: US (occurrence: US)
  Receive Date: 20190107
  Receipt Date: 20190107
  Transmission Date: 20190417
  Serious: No
  Sender: FDA-Public Use
  Company Number: None

PATIENT
  Sex: Male

DRUGS (1)
  1. ENTECAVIR TAB 1MG [Suspect]
     Active Substance: ENTECAVIR
     Dates: start: 2017

REACTIONS (2)
  - Product dose omission [None]
  - Insurance issue [None]
